FAERS Safety Report 14290949 (Version 4)
Quarter: 2018Q1

REPORT INFORMATION
  Report Type: Report from Study
  Country: US (occurrence: US)
  Receive Date: 20171215
  Receipt Date: 20180103
  Transmission Date: 20180509
  Serious: Yes (Other)
  Sender: FDA-Public Use
  Company Number: US-GILEAD-2017-0308957

PATIENT
  Age: 65 Year
  Sex: Female

DRUGS (5)
  1. SILDENAFIL CITRATE. [Concomitant]
     Active Substance: SILDENAFIL CITRATE
  2. AMBRISENTAN [Suspect]
     Active Substance: AMBRISENTAN
     Indication: PRODUCT USED FOR UNKNOWN INDICATION
     Dosage: 10 MG, QD
     Route: 065
     Dates: start: 20130410
  3. VELETRI [Concomitant]
     Active Substance: EPOPROSTENOL
  4. REVATIO [Concomitant]
     Active Substance: SILDENAFIL CITRATE
  5. UPTRAVI [Concomitant]
     Active Substance: SELEXIPAG

REACTIONS (11)
  - Lung disorder [Unknown]
  - Dyspnoea exertional [Not Recovered/Not Resolved]
  - Device connection issue [Not Recovered/Not Resolved]
  - Syncope [Unknown]
  - Oedema peripheral [Not Recovered/Not Resolved]
  - Dyspnoea [Not Recovered/Not Resolved]
  - Exercise tolerance decreased [Not Recovered/Not Resolved]
  - Nausea [Not Recovered/Not Resolved]
  - Rectal tenesmus [Unknown]
  - Anxiety [Recovering/Resolving]
  - Chills [Not Recovered/Not Resolved]
